FAERS Safety Report 4873859-1 (Version None)
Quarter: 2006Q1

REPORT INFORMATION
  Report Type: 
  Country: None (occurrence: None)
  Receive Date: 20060104
  Receipt Date: 20051227
  Transmission Date: 20060701
  Serious: Yes (Hospitalization)
  Sender: FDA-Public Use
  Company Number: 2005BI020005

PATIENT
  Age: 61 Year
  Sex: Female
  Weight: 75.7 kg

DRUGS (13)
  1. ZEVALIN [Suspect]
     Indication: NON-HODGKIN'S LYMPHOMA
     Dosage: 3.15 MCI; 1X; IV
     Route: 042
     Dates: start: 20050927, end: 20050927
  2. ZEVALIN [Suspect]
     Indication: NON-HODGKIN'S LYMPHOMA
     Dosage: 30 MCI; 1X; IV
     Route: 042
     Dates: start: 20051004, end: 20051004
  3. FLUDARABINE [Concomitant]
  4. RITUXIMAB [Concomitant]
  5. PROTONIX [Concomitant]
  6. ZOFRAN [Concomitant]
  7. SCOPOLAMINE PATCH [Concomitant]
  8. NORVASC [Concomitant]
  9. LISINOPRIL [Concomitant]
  10. LIPITOR [Concomitant]
  11. EFFEXOR [Concomitant]
  12. SUNTHROID [Concomitant]
  13. LUNESTA [Concomitant]

REACTIONS (24)
  - AGITATION [None]
  - ALANINE AMINOTRANSFERASE INCREASED [None]
  - ASPARTATE AMINOTRANSFERASE INCREASED [None]
  - ATRIAL FIBRILLATION [None]
  - BILIRUBIN CONJUGATED INCREASED [None]
  - BLOOD BILIRUBIN INCREASED [None]
  - BLOOD CALCIUM DECREASED [None]
  - BLOOD LACTATE DEHYDROGENASE INCREASED [None]
  - CONFUSIONAL STATE [None]
  - FEBRILE NEUTROPENIA [None]
  - GRAFT VERSUS HOST DISEASE [None]
  - HALLUCINATION, VISUAL [None]
  - HYPOKALAEMIA [None]
  - HYPOVOLAEMIA [None]
  - INAPPROPRIATE ANTIDIURETIC HORMONE SECRETION [None]
  - INSOMNIA [None]
  - LUNG CONSOLIDATION [None]
  - MEDICATION ERROR [None]
  - MENTAL STATUS CHANGES [None]
  - NAUSEA [None]
  - PLEURAL EFFUSION [None]
  - RASH ERYTHEMATOUS [None]
  - STEM CELL TRANSPLANT [None]
  - TACHYPNOEA [None]
